FAERS Safety Report 4318400-7 (Version None)
Quarter: 2004Q1

REPORT INFORMATION
  Report Type: 
  Country: None (occurrence: None)
  Receive Date: 20040315
  Receipt Date: 20040226
  Transmission Date: 20041129
  Serious: Yes (Other)
  Sender: FDA-Public Use
  Company Number: GB-JNJFOC-20040302346

PATIENT
  Age: 85 Year
  Sex: Male

DRUGS (3)
  1. REMINYL [Suspect]
     Indication: DEMENTIA
     Dosage: 12 MG, 2 IN 1 DAY, ORAL
     Route: 048
     Dates: start: 20030404
  2. MEMANTINE HCL [Concomitant]
  3. HYDROXOCOBALAMIN (HYDROXOCOBALMIN) [Concomitant]

REACTIONS (1)
  - MYOCARDIAL INFARCTION [None]
